FAERS Safety Report 4495070-9 (Version None)
Quarter: 2004Q4

REPORT INFORMATION
  Report Type: 
  Country: None (occurrence: None)
  Receive Date: 20041108
  Receipt Date: 20041028
  Transmission Date: 20050328
  Serious: Yes (Hospitalization)
  Sender: FDA-Public Use
  Company Number: US-ABBOTT-04P-163-0279379-00

PATIENT
  Sex: Female

DRUGS (4)
  1. HUMIRA [Suspect]
     Indication: RHEUMATOID ARTHRITIS
     Route: 058
     Dates: start: 20040101, end: 20040929
  2. INSULIN [Concomitant]
     Indication: DIABETES MELLITUS
     Route: 058
  3. INSULIN INJECTION, ISOPHANE [Concomitant]
     Indication: DIABETES MELLITUS
     Route: 058
  4. PREDNISONE [Concomitant]
     Indication: RHEUMATOID ARTHRITIS
     Route: 048

REACTIONS (2)
  - FALL [None]
  - HIP FRACTURE [None]
